FAERS Safety Report 8086500 (Version 8)
Quarter: 2013Q4

REPORT INFORMATION
  Report Type: Report from Study
  Country: FR (occurrence: FR)
  Receive Date: 20110811
  Receipt Date: 20131213
  Transmission Date: 20140711
  Serious: Yes (Death, Other)
  Sender: FDA-Public Use
  Company Number: FR-PFIZER INC-2011174097

PATIENT
  Age: 68 Year
  Sex: Male
  Weight: 73 kg

DRUGS (16)
  1. RAPAMUNE [Suspect]
     Indication: PROPHYLAXIS AGAINST TRANSPLANT REJECTION
     Dosage: 2 MG, 1X/DAY
     Route: 048
     Dates: start: 20080128, end: 20081222
  2. RAPAMUNE [Suspect]
     Dosage: 1 MG, 1X/DAY
     Route: 048
     Dates: start: 20081223
  3. PROGRAF [Suspect]
     Indication: IMMUNOSUPPRESSION
     Dosage: 10 MG, 1X/DAY, UNTIL RANDOMIZATION
     Dates: start: 20071227, end: 20080128
  4. PROGRAF [Suspect]
     Dosage: 4 MG, 1X/DAY FROM RANDOMIZATION
     Dates: start: 20080129, end: 20081222
  5. PROGRAF [Suspect]
     Dosage: 2 MG, 1X/DAY
     Dates: start: 20081223, end: 20090621
  6. PROGRAF [Suspect]
     Dosage: 1 MG, 1X/DAY
     Dates: start: 20090622, end: 20100617
  7. AMLOR [Concomitant]
     Dosage: 10
  8. PLAVIX [Concomitant]
     Dosage: 1 DF, 1X/DAY
  9. OMEPRAZOLE [Concomitant]
     Dosage: UNKNOWN
  10. CORDARONE [Concomitant]
     Dosage: 2 DF, 1X/DAY
  11. LEVOTHYROX [Concomitant]
     Dosage: UNKNOWN
  12. SECTRAL [Concomitant]
     Dosage: 200 MG, UNK
  13. ZEFFIX [Concomitant]
     Dosage: 1 DF, 1X/DAY
  14. INIPOMP [Concomitant]
     Dosage: 1 DF, 1X/DAY
  15. KENZEN [Concomitant]
     Dosage: 80, 1 DF, 1X/DAY
  16. VASTEN [Concomitant]

REACTIONS (1)
  - Oesophageal carcinoma [Fatal]
